FAERS Safety Report 16779387 (Version 1)
Quarter: 2019Q3

REPORT INFORMATION
  Report Type: Spontaneous
  Country: US (occurrence: US)
  Receive Date: 20190716
  Receipt Date: 20190716
  Transmission Date: 20191005
  Serious: Yes (Life-Threatening)
  Sender: FDA-Public Use
  Company Number: None

PATIENT
  Age: 72 Year
  Sex: Male
  Weight: 84.82 kg

DRUGS (1)
  1. CLONIDINE. [Suspect]
     Active Substance: CLONIDINE
     Indication: HYPERTENSION
     Dosage: ?          OTHER DOSE:0.1MG;?
     Route: 048
     Dates: start: 20120627, end: 20190514

REACTIONS (1)
  - Atrioventricular block complete [None]

NARRATIVE: CASE EVENT DATE: 20190514
